FAERS Safety Report 24711786 (Version 2)
Quarter: 2025Q1

REPORT INFORMATION
  Report Type: Report from Study
  Country: US (occurrence: US)
  Receive Date: 20241209
  Receipt Date: 20250327
  Transmission Date: 20250409
  Serious: Yes (Other)
  Sender: PAREXEL
  Company Number: US-STEMLINE THERAPEUTICS B.V.-2024-STML-US006487

PATIENT

DRUGS (2)
  1. ORSERDU [Suspect]
     Active Substance: ELACESTRANT
     Indication: Breast cancer female
     Dosage: 345 MG, ONE TABLET ONCE DAILY WITH FOOD
     Route: 048
     Dates: start: 20240711
  2. ORSERDU [Suspect]
     Active Substance: ELACESTRANT
     Dosage: 345 MG, DAILY
     Route: 048

REACTIONS (3)
  - Pneumonia [Unknown]
  - Pain [Unknown]
  - Back pain [Unknown]
